FAERS Safety Report 6588517-5 (Version None)
Quarter: 2010Q1

REPORT INFORMATION
  Report Type: 
  Country: None (occurrence: None)
  Receive Date: 20100218
  Receipt Date: 20091112
  Transmission Date: 20100710
  Serious: No
  Sender: FDA-Public Use
  Company Number: US-ALLERGAN-0915754US

PATIENT
  Sex: Female

DRUGS (2)
  1. BOTOX COSMETIC [Suspect]
     Indication: SKIN WRINKLING
     Dosage: 20 UNITS, SINGLE
     Route: 030
     Dates: start: 20091019, end: 20091019
  2. BOTOX COSMETIC [Suspect]
     Dosage: 4 UNITS, SINGLE
     Route: 030
     Dates: start: 20091105, end: 20091105

REACTIONS (1)
  - EYE MOVEMENT DISORDER [None]
